FAERS Safety Report 14337215 (Version 1)
Quarter: 2017Q4

REPORT INFORMATION
  Report Type: Spontaneous
  Country: US (occurrence: US)
  Receive Date: 20171228
  Receipt Date: 20171228
  Transmission Date: 20180321
  Serious: Yes (Other)
  Sender: FDA-Public Use
  Company Number: None

PATIENT
  Age: 77 Year
  Sex: Male
  Weight: 64.8 kg

DRUGS (8)
  1. VANCOMYCIN HCL 125 MG CAP [Suspect]
     Active Substance: VANCOMYCIN HYDROCHLORIDE
     Indication: CLOSTRIDIUM DIFFICILE INFECTION
     Dosage: ?          QUANTITY:1 CAPSULE(S);?
     Route: 048
     Dates: start: 20171228, end: 20171228
  2. VITAMIN B12 [Concomitant]
     Active Substance: CYANOCOBALAMIN
  3. MAGNESIUM [Concomitant]
     Active Substance: MAGNESIUM
  4. FISH OIL [Concomitant]
     Active Substance: FISH OIL
  5. ASSORTED VITAMINS [Concomitant]
  6. CALCIUM [Concomitant]
     Active Substance: CALCIUM
  7. DEXELANT [Concomitant]
  8. ASSORTED  SUPPLEMENTS [Concomitant]

REACTIONS (2)
  - Dry mouth [None]
  - Deafness unilateral [None]

NARRATIVE: CASE EVENT DATE: 20171228
